FAERS Safety Report 7600725-0 (Version None)
Quarter: 2011Q2

REPORT INFORMATION
  Report Type: 
  Country: None (occurrence: None)
  Receive Date: 20110629
  Receipt Date: 20110616
  Transmission Date: 20111010
  Serious: Yes (Death, Hospitalization, Other)
  Sender: FDA-Public Use
  Company Number: 2011MA006742

PATIENT
  Age: 32 Year
  Sex: Male

DRUGS (4)
  1. PYRAZINAMIDE [Concomitant]
  2. RIFAMPIN [Suspect]
     Indication: TUBERCULOSIS
     Dates: start: 20050824
  3. ETHAMBUTOL HYDROCHLORIDE [Concomitant]
  4. ISONIAZID [Concomitant]

REACTIONS (4)
  - TOXIC EPIDERMAL NECROLYSIS [None]
  - ANAEMIA [None]
  - HYPONATRAEMIA [None]
  - GENERAL PHYSICAL HEALTH DETERIORATION [None]
